FAERS Safety Report 14814532 (Version 2)
Quarter: 2018Q2

REPORT INFORMATION
  Report Type: Spontaneous
  Country: BR (occurrence: BR)
  Receive Date: 20180426
  Receipt Date: 20180502
  Transmission Date: 20180711
  Serious: Yes (Death, Hospitalization)
  Sender: FDA-Public Use
  Company Number: BR-ELI_LILLY_AND_COMPANY-BR201804012883

PATIENT
  Age: 40 Year
  Sex: Female

DRUGS (1)
  1. TRULICITY [Suspect]
     Active Substance: DULAGLUTIDE
     Indication: WEIGHT DECREASED
     Dosage: UNK UNK, UNKNOWN
     Route: 065
     Dates: start: 20180311

REACTIONS (4)
  - Intentional product misuse [Unknown]
  - Ischaemic stroke [Fatal]
  - Carotid artery stenosis [Fatal]
  - Essential hypertension [Fatal]

NARRATIVE: CASE EVENT DATE: 20180311
